FAERS Safety Report 10177156 (Version 1)
Quarter: 2014Q2

REPORT INFORMATION
  Report Type: Spontaneous
  Country: US (occurrence: None)
  Receive Date: 20140515
  Receipt Date: 20140515
  Transmission Date: 20141212
  Serious: Yes (Other)
  Sender: FDA-Public Use
  Company Number: None

PATIENT
  Age: 62 Year
  Sex: Female
  Weight: 63.05 kg

DRUGS (1)
  1. HUMIRA 40 MG [Suspect]
     Indication: RHEUMATOID ARTHRITIS
     Dosage: 40 MG INJECTABLE SUBCUTANEOUS 057 QOW
     Route: 058
     Dates: start: 2009

REACTIONS (4)
  - Hot flush [None]
  - Breast tenderness [None]
  - Breast enlargement [None]
  - Breast pain [None]
